FAERS Safety Report 12432532 (Version 1)
Quarter: 2016Q2

REPORT INFORMATION
  Report Type: Spontaneous
  Country: US (occurrence: US)
  Receive Date: 20160603
  Receipt Date: 20160603
  Transmission Date: 20160815
  Serious: No
  Sender: FDA-Public Use
  Company Number: US-ACTAVIS-2016-07583

PATIENT
  Age: 63 Year
  Sex: Male

DRUGS (2)
  1. GUAIFENESIN, PSEUDOEPHEDRINE (ACTAVIS LABORATORIES FL, INC.) [Suspect]
     Active Substance: GUAIFENESIN\PSEUDOEPHEDRINE HYDROCHLORIDE
     Indication: NASOPHARYNGITIS
     Dosage: 2 DF, SINGLE
     Route: 048
     Dates: start: 20160405, end: 20160405
  2. GUAIFENESIN, PSEUDOEPHEDRINE (ACTAVIS LABORATORIES FL, INC.) [Suspect]
     Active Substance: GUAIFENESIN\PSEUDOEPHEDRINE HYDROCHLORIDE
     Indication: PULMONARY CONGESTION
     Dosage: 2 DF, SINGLE
     Route: 048
     Dates: start: 20160404, end: 20160404

REACTIONS (2)
  - Dizziness [Not Recovered/Not Resolved]
  - Nausea [Not Recovered/Not Resolved]

NARRATIVE: CASE EVENT DATE: 20160405
